FAERS Safety Report 20942164 (Version 1)
Quarter: 2022Q2

REPORT INFORMATION
  Report Type: Spontaneous
  Country: CA (occurrence: CA)
  Receive Date: 20220610
  Receipt Date: 20220610
  Transmission Date: 20220721
  Serious: Yes (Hospitalization)
  Sender: FDA-Public Use
  Company Number: CA-SPECGX-T202102312

PATIENT
  Age: 35 Year
  Sex: Female

DRUGS (20)
  1. METHADOSE [Suspect]
     Active Substance: METHADONE HYDROCHLORIDE
     Indication: Drug use disorder
     Dosage: UNK, 25WEEK AND 2DAY OF GESTATION
     Route: 065
  2. METHADOSE [Suspect]
     Active Substance: METHADONE HYDROCHLORIDE
     Dosage: 140 MILLIGRAM, BID (2 EVERY 1 DAYS; 31 WEEKS AND 6 DAY GESTATION)
     Route: 065
  3. METHADOSE [Suspect]
     Active Substance: METHADONE HYDROCHLORIDE
     Dosage: UNK  (EVERY 0.5 DAYS)
     Route: 065
  4. METHADOSE [Suspect]
     Active Substance: METHADONE HYDROCHLORIDE
     Dosage: UNK  (2 EVERY 1 DAYS)
     Route: 065
  5. METHADOSE [Suspect]
     Active Substance: METHADONE HYDROCHLORIDE
     Dosage: UNK, 32 WEEKS GESTATIONS (142MG MORNING AND 143 MG NIGHT)
     Route: 065
     Dates: end: 2019
  6. METHADOSE [Suspect]
     Active Substance: METHADONE HYDROCHLORIDE
     Dosage: UNK, 33 WEEKS AND 4 DAYS GESTATIONS (142MG MORNING THAT INCREASED TO 160 MG IN THE NIGHT FOR 5 DAYS)
     Route: 065
     Dates: end: 2019
  7. METHADOSE [Suspect]
     Active Substance: METHADONE HYDROCHLORIDE
     Dosage: 142MG MORNING AND 170 MG AT NIGHT, 34 WEEKS AND 4 DAYS GESTATIONS
     Route: 065
     Dates: end: 2019
  8. METHADOSE [Suspect]
     Active Substance: METHADONE HYDROCHLORIDE
     Dosage: 30 MILLIGRAM, QD 35 WEEKS AND 4DAYS GESTATION (* 160MG MORNING FOR 5 DAYS, THEN 170MG MORNING AND 17
     Route: 065
     Dates: start: 2019, end: 2019
  9. METHADOSE [Suspect]
     Active Substance: METHADONE HYDROCHLORIDE
     Dosage: 170 MILLIGRAM (2 EVERY 1 DAYS)
     Route: 065
  10. HYDROMORPHONE [Suspect]
     Active Substance: HYDROMORPHONE
     Indication: Drug use disorder
     Dosage: UNK, SHORT ACTING
     Route: 065
  11. MORPHINE [Suspect]
     Active Substance: MORPHINE
     Indication: Postoperative analgesia
     Dosage: UNK (EVERY 0.5 DAYS)
     Route: 048
  12. MORPHINE [Suspect]
     Active Substance: MORPHINE
     Indication: Drug use disorder
     Dosage: 600 MILLIGRAM, BID (2 EVERY 1 DAYS; 31 WEEKS AND 6 DAY GESTATION, 32 WEEKS GESTATIONS, 33 WEEKS AND
     Route: 048
     Dates: start: 2019
  13. MORPHINE [Suspect]
     Active Substance: MORPHINE
     Dosage: 150 MILLIGRAM, (4 EVERY 1 DAYS);  PRN (TOTAL 900MG); SHORT ACTING
     Route: 065
  14. MORPHINE [Suspect]
     Active Substance: MORPHINE
     Dosage: UNK (EVERY 0.5 DAYS)
     Route: 048
  15. MORPHINE [Suspect]
     Active Substance: MORPHINE
     Dosage: 600 MILLIGRAM, BID (2 EVERY 1 DAYS), (600MG MORNING, 640 MG AT NIGHT FOR 2 D AND TEN 680MG NIGHT, 34
     Route: 048
     Dates: start: 2019
  16. MORPHINE [Suspect]
     Active Substance: MORPHINE
     Dosage: CESAREAN DELIVERY AT 39WEEKS AND 1 DAY  GESTATION(600MG MORNING AND 680MG NIGHT)
     Route: 048
  17. OXYCODONE [Suspect]
     Active Substance: OXYCODONE
     Indication: Drug use disorder
     Dosage: UNK, LONG ACTING
     Route: 065
     Dates: start: 2010
  18. OXYCODONE [Suspect]
     Active Substance: OXYCODONE
     Indication: Pain
  19. MORPHINE [Suspect]
     Active Substance: MORPHINE
     Indication: Postoperative analgesia
     Dosage: 150 MILLIGRAM, (4 EVERY 1 DAYS);  PRN (TOTAL 900MG); SHORT ACTING
     Route: 048
     Dates: start: 2019
  20. MORPHINE [Suspect]
     Active Substance: MORPHINE
     Indication: Drug use disorder

REACTIONS (11)
  - Live birth [Unknown]
  - Rhinorrhoea [Recovering/Resolving]
  - Tachycardia [Recovering/Resolving]
  - Constipation [Unknown]
  - Drug dependence [Recovering/Resolving]
  - Drug tolerance increased [Unknown]
  - Drug withdrawal syndrome [Recovered/Resolved]
  - Hyperhidrosis [Recovering/Resolving]
  - Overdose [Unknown]
  - Intentional product misuse [Unknown]
  - Maternal exposure during pregnancy [Unknown]
